FAERS Safety Report 14250705 (Version 1)
Quarter: 2017Q4

REPORT INFORMATION
  Report Type: Spontaneous
  Country: US (occurrence: US)
  Receive Date: 20171205
  Receipt Date: 20171205
  Transmission Date: 20180321
  Serious: No
  Sender: FDA-Public Use
  Company Number: US-PFIZER INC-2017101583

PATIENT
  Age: 70 Year
  Sex: Female
  Weight: 62 kg

DRUGS (16)
  1. ASPIRIN. [Concomitant]
     Active Substance: ASPIRIN
     Indication: PULMONARY ARTERIAL HYPERTENSION
     Dosage: 81 MG, 2X/WEEK
     Route: 048
     Dates: start: 20160321
  2. ASPIRIN. [Concomitant]
     Active Substance: ASPIRIN
     Indication: DYSLIPIDAEMIA
  3. MICRO-K [Concomitant]
     Active Substance: POTASSIUM CHLORIDE
     Indication: PULMONARY ARTERIAL HYPERTENSION
     Dosage: 10 MEQ, DAILY
     Route: 048
     Dates: start: 20170119
  4. PROVENTIL [Concomitant]
     Active Substance: ALBUTEROL
     Indication: WHEEZING
     Dosage: UNK UNK, AS NEEDED (1-2 PUFFS INTO THE LUNGS EVERY 6 (SIX) HOURS AS NEEDED)
     Route: 055
     Dates: start: 20160831
  5. REVATIO [Suspect]
     Active Substance: SILDENAFIL CITRATE
     Indication: PULMONARY HYPERTENSION
     Dosage: 40 MG, 3X/DAY, TAKE 2 TABLETS (40 MG TOTAL)
     Route: 048
  6. VENTOLIN HFA [Concomitant]
     Active Substance: ALBUTEROL SULFATE
     Indication: BRONCHITIS
  7. MORPHINE [Concomitant]
     Active Substance: MORPHINE
     Indication: PULMONARY ARTERIAL HYPERTENSION
     Dosage: 2 MG, AS NEEDED  (TAKE 1 ML (2 MG TOTAL) 4 TIMES DAILY PRN)
     Route: 048
     Dates: start: 20160321
  8. VENTOLIN HFA [Concomitant]
     Active Substance: ALBUTEROL SULFATE
     Indication: WHEEZING
     Dosage: UNK UNK, AS NEEDED (1-2 PUFFS INTO THE LUNGS EVERY 6 (SIX) HOURS AS NEEDED)
     Route: 055
     Dates: start: 20160831
  9. LASIX [Concomitant]
     Active Substance: FUROSEMIDE
     Dosage: 20 MG, ALTERNATE DAY (TAKE 1 TABLET BY MOUTH EVERY OTHER DAY)
     Route: 048
     Dates: start: 20170217
  10. VITAMIN D3 [Concomitant]
     Active Substance: CHOLECALCIFEROL
     Indication: VITAMIN D DEFICIENCY
     Dosage: 2000 IU (2 TABLETS), 2X/DAY
     Route: 048
     Dates: start: 20161228
  11. FLONASE [Concomitant]
     Active Substance: FLUTICASONE PROPIONATE
     Dosage: 2 DF, DAILY (USE 2 SPRAYS IN EACH NOSTRIL DAILY)
     Route: 045
     Dates: start: 20170225
  12. ZOCOR [Concomitant]
     Active Substance: SIMVASTATIN
     Indication: DYSLIPIDAEMIA
     Dosage: 40 MG, DAILY NIGHTLY
     Route: 048
     Dates: start: 20160217
  13. ALDACTONE [Concomitant]
     Active Substance: SPIRONOLACTONE
     Indication: PULMONARY ARTERIAL HYPERTENSION
     Dosage: 25 MG, DAILY
     Route: 048
     Dates: start: 20160217
  14. REVATIO [Suspect]
     Active Substance: SILDENAFIL CITRATE
     Indication: PULMONARY ARTERIAL HYPERTENSION
     Dosage: 40 MG, 3X/DAY (20 MG TWO PILLS)
     Route: 048
  15. PROVENTIL [Concomitant]
     Active Substance: ALBUTEROL
     Indication: BRONCHITIS
  16. IMITREX [Concomitant]
     Active Substance: SUMATRIPTAN SUCCINATE
     Indication: MIGRAINE WITHOUT AURA
     Dosage: 25 MG, AS NEEDED (TAKE 1 TABLET (25 MG TOTAL) ONCE )
     Route: 048
     Dates: start: 20160119

REACTIONS (4)
  - Intentional product misuse [Recovered/Resolved]
  - Product use issue [Unknown]
  - Chest pain [Recovered/Resolved]
  - Drug dose omission [Not Recovered/Not Resolved]

NARRATIVE: CASE EVENT DATE: 20171126
